FAERS Safety Report 4659385-3 (Version None)
Quarter: 2005Q2

REPORT INFORMATION
  Report Type: 
  Country: None (occurrence: None)
  Receive Date: 20050510
  Receipt Date: 20050502
  Transmission Date: 20051028
  Serious: Yes (Hospitalization)
  Sender: FDA-Public Use
  Company Number: 2005AL001639

PATIENT
  Age: 78 Year
  Sex: Female

DRUGS (6)
  1. SERAX [Suspect]
     Dosage: PO
     Route: 048
  2. GAVISCON [Suspect]
     Dosage: PO
     Route: 048
  3. MOPRAL [Suspect]
     Dosage: PO
     Route: 048
  4. DOMPERIDONE [Suspect]
     Dosage: PO
     Route: 048
  5. PIROXICAM [Suspect]
     Dosage: QD; PO
     Route: 048
     Dates: start: 20050321, end: 20050326
  6. TETRAZEPAM [Suspect]
     Dosage: PO
     Route: 048
     Dates: start: 20050321

REACTIONS (2)
  - BLOOD AMYLASE INCREASED [None]
  - OESOPHAGEAL ULCER HAEMORRHAGE [None]
